FAERS Safety Report 8864251 (Version 1)
Quarter: 2012Q4

REPORT INFORMATION
  Report Type: 
  Country: US (occurrence: US)
  Receive Date: 20121024
  Receipt Date: 20121024
  Transmission Date: 20130627
  Serious: No
  Sender: FDA-Public Use
  Company Number: US-AMGEN-USASP2011066491

PATIENT
  Sex: Female
  Weight: 40.82 kg

DRUGS (2)
  1. ENBREL [Suspect]
     Indication: PRODUCT USED FOR UNKNOWN INDICATION
     Dosage: 50 mg, qwk
     Route: 058
  2. TYLENOL /00020001/ [Concomitant]
     Dosage: 325 mg, UNK
     Route: 048

REACTIONS (3)
  - Headache [Unknown]
  - Infection [Unknown]
  - Pyrexia [Unknown]
